FAERS Safety Report 13086815 (Version 1)
Quarter: 2017Q1

REPORT INFORMATION
  Report Type: Spontaneous
  Country: AU (occurrence: AU)
  Receive Date: 20170104
  Receipt Date: 20170104
  Transmission Date: 20170428
  Serious: Yes (Death, Hospitalization, Other)
  Sender: FDA-Public Use
  Company Number: PHHY2016AU178416

PATIENT
  Age: 67 Year
  Sex: Male

DRUGS (1)
  1. METHOTREXATE. [Suspect]
     Active Substance: METHOTREXATE
     Indication: RHEUMATOID ARTHRITIS
     Dosage: 20 MG, UNK
     Route: 065

REACTIONS (5)
  - Haemorrhage [Fatal]
  - Mucocutaneous ulceration [Fatal]
  - Cardio-respiratory arrest [Fatal]
  - Neutropenia [Recovering/Resolving]
  - Bone marrow toxicity [Recovering/Resolving]
